FAERS Safety Report 15580853 (Version 3)
Quarter: 2018Q4

REPORT INFORMATION
  Report Type: Report from Study
  Country: HU (occurrence: HU)
  Receive Date: 20181105
  Receipt Date: 20181207
  Transmission Date: 20190205
  Serious: Yes (Hospitalization)
  Sender: FDA-Public Use
  Company Number: HU-AMGEN-HUNCT2018131379

PATIENT
  Age: 15 Year
  Sex: Female
  Weight: 51 kg

DRUGS (2)
  1. ETANERCEPT [Suspect]
     Active Substance: ETANERCEPT
     Indication: PSORIASIS
     Dosage: 24.8 MG, QWK
     Route: 058
     Dates: start: 20120123, end: 20120815
  2. ETANERCEPT [Suspect]
     Active Substance: ETANERCEPT
     Dosage: 24.8 MG, QWK
     Route: 058
     Dates: start: 20121009, end: 20130405

REACTIONS (2)
  - Psoriasis [Recovered/Resolved]
  - Drug ineffective [Recovered/Resolved]

NARRATIVE: CASE EVENT DATE: 20180221
